FAERS Safety Report 10019401 (Version 4)
Quarter: 2014Q2

REPORT INFORMATION
  Report Type: Spontaneous
  Country: AU (occurrence: AU)
  Receive Date: 20140318
  Receipt Date: 20140512
  Transmission Date: 20141212
  Serious: Yes (Hospitalization)
  Sender: FDA-Public Use
  Company Number: AU-TEVA-469207ISR

PATIENT
  Age: 10 Day
  Sex: Male

DRUGS (1)
  1. COPAXONE [Suspect]
     Dosage: VIA BREAST FEEDING

REACTIONS (3)
  - Necrotising colitis [Recovered/Resolved with Sequelae]
  - Exposure during breast feeding [Unknown]
  - Haematochezia [Recovered/Resolved with Sequelae]
